FAERS Safety Report 13007242 (Version 1)
Quarter: 2016Q4

REPORT INFORMATION
  Report Type: Spontaneous
  Country: GB (occurrence: GB)
  Receive Date: 20161207
  Receipt Date: 20161207
  Transmission Date: 20170207
  Serious: Yes (Hospitalization)
  Sender: FDA-Public Use
  Company Number: GB-TEVA-717431ACC

PATIENT
  Age: 89 Year
  Sex: Female

DRUGS (5)
  1. BISOPROLOL [Concomitant]
     Active Substance: BISOPROLOL
  2. FUROSEMIDE. [Suspect]
     Active Substance: FUROSEMIDE
     Route: 048
  3. RIVAROXABAN [Concomitant]
     Active Substance: RIVAROXABAN
  4. BRINZOLAMIDE [Concomitant]
     Active Substance: BRINZOLAMIDE
  5. LATANOPROST. [Concomitant]
     Active Substance: LATANOPROST

REACTIONS (5)
  - Malaise [Unknown]
  - Confusional state [Unknown]
  - Decreased appetite [Unknown]
  - Acute kidney injury [Recovering/Resolving]
  - Abnormal loss of weight [Unknown]
